FAERS Safety Report 8919815 (Version 3)
Quarter: 2013Q3

REPORT INFORMATION
  Report Type: Spontaneous
  Country: US (occurrence: US)
  Receive Date: 20121121
  Receipt Date: 20130729
  Transmission Date: 20140515
  Serious: Yes (Hospitalization, Other)
  Sender: FDA-Public Use
  Company Number: US-BAYER-2012-119916

PATIENT
  Age: 22 Year
  Sex: Female
  Weight: 61.22 kg

DRUGS (20)
  1. YAZ [Suspect]
     Indication: DYSMENORRHOEA
     Dosage: UNK
     Dates: start: 200811, end: 200907
  2. YAZ [Suspect]
     Indication: POLYCYSTIC OVARIES
  3. CLOBEX [Concomitant]
     Dosage: 0.05 %, UNK
  4. FLUCONAZOLE [Concomitant]
     Dosage: 150 MG, UNK
  5. NYSTATIN W/TRIAMCINOLONE [NYSTATIN,TRIAMCINOLONE] [Concomitant]
  6. METRONIDAZOLE [Concomitant]
     Dosage: 500 MG, UNK
  7. DOXYCYCLINE HYCLATE [DOXYCYCLINE HYCLATE] [Concomitant]
  8. FLAGYL [Concomitant]
     Indication: FUNGAL INFECTION
  9. DOXYCYCLIN [DOXYCYCLINE] [Concomitant]
  10. MIRALAX [Concomitant]
     Indication: CONSTIPATION
  11. LORTAB [Concomitant]
     Indication: ABDOMINAL PAIN
  12. IBUPROFEN [IBUPROFEN] [Concomitant]
     Dosage: 800 MG, 1-3-4 TIMES DAILY PRN
     Route: 048
  13. MEDROL [METHYLPREDNISOLONE] [Concomitant]
     Indication: PLEURISY
  14. METHYLPREDNISOLONE [METHYLPREDNISOLONE] [Concomitant]
     Dosage: 4 MG, UNK
  15. DIFLUCAN [Concomitant]
     Indication: VULVOVAGINAL MYCOTIC INFECTION
  16. HYCODAN [HYDROCODONE BITARTRATE] [Concomitant]
  17. HYDROCODONE W/HOMATROPINE [Concomitant]
  18. PREDNISONE [Concomitant]
     Dosage: 10 MG, UNK
  19. NYSTATIN [Concomitant]
  20. HYDROCODONE [HYDROCODONE] [Concomitant]

REACTIONS (11)
  - Deep vein thrombosis [None]
  - Pulmonary embolism [Recovered/Resolved]
  - Pain [None]
  - Injury [None]
  - General physical health deterioration [None]
  - Anxiety [None]
  - Emotional distress [None]
  - Pain [None]
  - Dyspnoea [Recovered/Resolved]
  - Cardiomegaly [None]
  - Mental disorder [None]
